FAERS Safety Report 4409617-1 (Version None)
Quarter: 2004Q3

REPORT INFORMATION
  Report Type: 
  Country: None (occurrence: None)
  Receive Date: 20040726
  Receipt Date: 20040712
  Transmission Date: 20050211
  Serious: Yes (Death)
  Sender: FDA-Public Use
  Company Number: 2004-UK-00677UK

PATIENT
  Age: 65 Year
  Sex: Female

DRUGS (2)
  1. TIOTROPIUM (00015/0190/A) (TIOTROPIUM BROMIDE) (NR) (TIOTROPIUM) [Suspect]
     Dosage: OD
     Route: 055
     Dates: start: 20030422
  2. COMBIVENT [Concomitant]

REACTIONS (1)
  - SUDDEN DEATH [None]
